FAERS Safety Report 6740765-7 (Version None)
Quarter: 2010Q2

REPORT INFORMATION
  Report Type: 
  Country: None (occurrence: None)
  Receive Date: 20100524
  Receipt Date: 20100514
  Transmission Date: 20101027
  Serious: Yes (Hospitalization)
  Sender: FDA-Public Use
  Company Number: 2009SP004117

PATIENT
  Age: 52 Year
  Sex: Female

DRUGS (4)
  1. PEG-INTRON [Suspect]
     Indication: HEPATITIS C
     Dates: start: 20080630, end: 20081229
  2. RIBAVIRIN [Suspect]
     Indication: HEPATITIS C
     Dosage: ; PO
     Route: 048
     Dates: start: 20080630, end: 20081229
  3. SEROQUEL [Concomitant]
  4. NEXIUM [Concomitant]

REACTIONS (15)
  - AGGRESSION [None]
  - AMMONIA DECREASED [None]
  - BLOOD POTASSIUM DECREASED [None]
  - CONFUSIONAL STATE [None]
  - CONTUSION [None]
  - DRY SKIN [None]
  - DYSPEPSIA [None]
  - HEPATIC CYST [None]
  - INCOHERENT [None]
  - INTERVERTEBRAL DISC DEGENERATION [None]
  - LIVER DISORDER [None]
  - MEMORY IMPAIRMENT [None]
  - NOCTURNAL DYSPNOEA [None]
  - PRURITUS [None]
  - THROMBOSIS [None]
